FAERS Safety Report 10446398 (Version 1)
Quarter: 2014Q3

REPORT INFORMATION
  Report Type: Spontaneous
  Country: GB (occurrence: GB)
  Receive Date: 20140911
  Receipt Date: 20140911
  Transmission Date: 20150326
  Serious: Yes (Other)
  Sender: FDA-Public Use
  Company Number: GB-JNJFOC-20140906746

PATIENT
  Age: 39 Year
  Sex: Male

DRUGS (2)
  1. REGAINE EXTRA STRENGTH-MENS (5%) [Suspect]
     Active Substance: MINOXIDIL
     Indication: ANDROGENETIC ALOPECIA
     Dosage: FOR 3 MONTHS
     Route: 065
     Dates: start: 201401, end: 201403
  2. REGAINE EXTRA STRENGTH-MENS (5%) [Suspect]
     Active Substance: MINOXIDIL
     Route: 065

REACTIONS (3)
  - Dyspnoea [Unknown]
  - Throat tightness [Unknown]
  - Granulomatosis with polyangiitis [Not Recovered/Not Resolved]

NARRATIVE: CASE EVENT DATE: 201405
